FAERS Safety Report 10265334 (Version 1)
Quarter: 2014Q2

REPORT INFORMATION
  Report Type: Spontaneous
  Country: US (occurrence: US)
  Receive Date: 20140627
  Receipt Date: 20140627
  Transmission Date: 20141212
  Serious: No
  Sender: FDA-Public Use
  Company Number: US-GLAXOSMITHKLINE-A1064705A

PATIENT
  Age: 38 Year
  Sex: Female

DRUGS (3)
  1. MEKINIST [Suspect]
     Indication: HEPATIC CANCER
     Dosage: 2MG PER DAY
     Route: 048
     Dates: start: 201402
  2. TAFINLAR [Suspect]
     Indication: HEPATIC CANCER
     Dosage: 150MG TWICE PER DAY
     Route: 048
     Dates: start: 201402
  3. SUPPLEMENT [Concomitant]

REACTIONS (2)
  - Chest pain [Unknown]
  - Chest discomfort [Unknown]
